FAERS Safety Report 7337872-7 (Version None)
Quarter: 2011Q1

REPORT INFORMATION
  Report Type: 
  Country: None (occurrence: None)
  Receive Date: 20110210
  Receipt Date: 20101112
  Transmission Date: 20110831
  Serious: No
  Sender: FDA-Public Use
  Company Number: 1000017307

PATIENT
  Age: 68 Year
  Sex: Female

DRUGS (7)
  1. SAVELLA [Suspect]
     Indication: FIBROMYALGIA
     Dosage: SEE IMAGE
     Route: 048
     Dates: start: 20101004, end: 20101007
  2. SAVELLA [Suspect]
     Indication: FIBROMYALGIA
     Dosage: SEE IMAGE
     Route: 048
     Dates: start: 20101008
  3. SAVELLA [Suspect]
     Indication: FIBROMYALGIA
     Dosage: SEE IMAGE
     Route: 048
     Dates: start: 20101001, end: 20101001
  4. SAVELLA [Suspect]
     Indication: FIBROMYALGIA
     Dosage: SEE IMAGE
     Route: 048
     Dates: start: 20101002, end: 20101013
  5. CELEXA [Concomitant]
  6. AMBIEN [Concomitant]
  7. SYNTHROID (LEVOTHYROXINE SODIUM) (LEVOTHYROXINE SODIUM) [Concomitant]

REACTIONS (8)
  - CONSTIPATION [None]
  - MUSCLE SPASMS [None]
  - BACK PAIN [None]
  - HOT FLUSH [None]
  - BLOOD PRESSURE INCREASED [None]
  - TENSION HEADACHE [None]
  - HYPERHIDROSIS [None]
  - HEART RATE INCREASED [None]
